FAERS Safety Report 16320317 (Version 3)
Quarter: 2023Q1

REPORT INFORMATION
  Report Type: Spontaneous
  Country: US (occurrence: US)
  Receive Date: 20190516
  Receipt Date: 20230328
  Transmission Date: 20230417
  Serious: No
  Sender: FDA-Public Use
  Company Number: US-PFIZER INC-2019207139

PATIENT
  Age: 69 Year
  Sex: Female

DRUGS (2)
  1. XELJANZ [Suspect]
     Active Substance: TOFACITINIB CITRATE
     Dosage: 5 MG
  2. DICLOFENAC SODIUM [Concomitant]
     Active Substance: DICLOFENAC SODIUM
     Dosage: 50 MG

REACTIONS (6)
  - Pain [Unknown]
  - Musculoskeletal disorder [Unknown]
  - Urticaria [Recovered/Resolved]
  - Cough [Unknown]
  - Nasopharyngitis [Unknown]
  - Weight fluctuation [Unknown]
